FAERS Safety Report 7322598-6 (Version None)
Quarter: 2011Q1

REPORT INFORMATION
  Report Type: 
  Country: None (occurrence: None)
  Receive Date: 20110301
  Receipt Date: 20110225
  Transmission Date: 20110831
  Serious: No
  Sender: FDA-Public Use
  Company Number: US-PFIZER INC-2011042900

PATIENT
  Sex: Female

DRUGS (2)
  1. ZOLOFT [Suspect]
     Dosage: 50 MG, UNK
  2. ZOLOFT [Suspect]
     Dosage: 25 MG, UNK

REACTIONS (2)
  - SOMNOLENCE [None]
  - FATIGUE [None]
